FAERS Safety Report 24138784 (Version 1)
Quarter: 2024Q3

REPORT INFORMATION
  Report Type: Report from Study
  Country: US (occurrence: US)
  Receive Date: 20240725
  Receipt Date: 20240725
  Transmission Date: 20241017
  Serious: Yes (Other)
  Sender: ABBVIE
  Company Number: US-ABBVIE-5850663

PATIENT
  Sex: Female

DRUGS (1)
  1. HUMIRA [Suspect]
     Active Substance: ADALIMUMAB
     Indication: Ankylosing spondylitis
     Dosage: STOP DATE: 2024
     Route: 058
     Dates: start: 20240325

REACTIONS (2)
  - Blindness unilateral [Unknown]
  - Eye disorder [Unknown]

NARRATIVE: CASE EVENT DATE: 20240101
